FAERS Safety Report 21729593 (Version 4)
Quarter: 2023Q2

REPORT INFORMATION
  Report Type: Report from Study
  Country: US (occurrence: US)
  Receive Date: 20221214
  Receipt Date: 20230518
  Transmission Date: 20230722
  Serious: Yes (Other)
  Sender: FDA-Public Use
  Company Number: US-JAZZ-2022-US-029265

PATIENT
  Age: 21 Year
  Sex: Male

DRUGS (3)
  1. XYWAV [Suspect]
     Active Substance: CALCIUM OXYBATE\MAGNESIUM OXYBATE\POTASSIUM OXYBATE\SODIUM OXYBATE
     Indication: Narcolepsy
     Dosage: 3.75 GRAM
  2. XYWAV [Suspect]
     Active Substance: CALCIUM OXYBATE\MAGNESIUM OXYBATE\POTASSIUM OXYBATE\SODIUM OXYBATE
     Indication: Cataplexy
     Dosage: 3.25 GRAMS THEN 3.0 GRAMS
  3. XYWAV [Suspect]
     Active Substance: CALCIUM OXYBATE\MAGNESIUM OXYBATE\POTASSIUM OXYBATE\SODIUM OXYBATE
     Indication: Somnolence
     Dosage: 3.25 G AT BEDTIME AND 3 G 2 AND HALF HOUR TO 4 HOURS LATER

REACTIONS (10)
  - Serotonin syndrome [Unknown]
  - Cataplexy [Unknown]
  - Nasopharyngitis [Unknown]
  - Affective disorder [Unknown]
  - Chest discomfort [Unknown]
  - Dyspnoea [Unknown]
  - Disturbance in attention [Unknown]
  - Dizziness [Unknown]
  - Tremor [Unknown]
  - Product administration interrupted [Unknown]

NARRATIVE: CASE EVENT DATE: 20221201
